FAERS Safety Report 6224221-0 (Version None)
Quarter: 2009Q2

REPORT INFORMATION
  Report Type: 
  Country: None (occurrence: None)
  Receive Date: 20090612
  Receipt Date: 20090311
  Transmission Date: 20091009
  Serious: No
  Sender: FDA-Public Use
  Company Number: US-ABBOTT-09P-163-0562167-00

PATIENT
  Age: 41 Year
  Sex: Female
  Weight: 55.388 kg

DRUGS (2)
  1. HUMIRA [Suspect]
     Indication: CROHN'S DISEASE
     Route: 058
     Dates: start: 20090227, end: 20090227
  2. HUMIRA [Suspect]

REACTIONS (2)
  - OEDEMA PERIPHERAL [None]
  - SKIN TIGHTNESS [None]
